FAERS Safety Report 9796207 (Version 3)
Quarter: 2014Q1

REPORT INFORMATION
  Report Type: Report from Study
  Country: US (occurrence: US)
  Receive Date: 20140103
  Receipt Date: 20140114
  Transmission Date: 20141002
  Serious: Yes (Hospitalization)
  Sender: FDA-Public Use
  Company Number: US-ONYX-2013-1785

PATIENT
  Age: 65 Year
  Sex: Female
  Weight: 129.4 kg

DRUGS (5)
  1. MELPHALAN [Concomitant]
     Indication: PLASMA CELL MYELOMA
     Dates: start: 20131030, end: 20131030
  2. RYTHMOL [Concomitant]
     Indication: PRODUCT USED FOR UNKNOWN INDICATION
  3. TOPROL [Concomitant]
     Indication: PRODUCT USED FOR UNKNOWN INDICATION
  4. CARFILZOMIB [Suspect]
     Indication: PLASMA CELL MYELOMA
     Route: 042
     Dates: start: 20131029, end: 20131029
  5. CARFILZOMIB [Suspect]
     Route: 042
     Dates: start: 20131030, end: 20131030

REACTIONS (1)
  - Atrial fibrillation [Not Recovered/Not Resolved]
